FAERS Safety Report 12399077 (Version 2)
Quarter: 2016Q3

REPORT INFORMATION
  Report Type: Spontaneous
  Country: FR (occurrence: FR)
  Receive Date: 20160524
  Receipt Date: 20160713
  Transmission Date: 20161109
  Serious: Yes (Hospitalization)
  Sender: FDA-Public Use
  Company Number: FR-PFIZER INC-2016269476

PATIENT
  Age: 7 Year
  Sex: Male

DRUGS (29)
  1. CARBOPLATINE HOSPIRA [Suspect]
     Active Substance: CARBOPLATIN
     Dosage: UNK
     Route: 042
     Dates: start: 20100301, end: 20100306
  2. VEPESIDE [Suspect]
     Active Substance: ETOPOSIDE
     Dosage: 120 MG, UNK
     Route: 042
     Dates: start: 20081114, end: 20081118
  3. ENDOXAN /00021101/ [Suspect]
     Active Substance: CYCLOPHOSPHAMIDE
     Dosage: UNK
     Route: 042
     Dates: start: 20090227
  4. CARBOPLATINE HOSPIRA [Suspect]
     Active Substance: CARBOPLATIN
     Dosage: 6 COURSES
     Route: 042
  5. VINCRISTINE SULFATE. [Suspect]
     Active Substance: VINCRISTINE SULFATE
     Dosage: UNK
     Route: 042
     Dates: start: 20090423
  6. CISPLATIN. [Suspect]
     Active Substance: CISPLATIN
     Dosage: UNK
     Route: 042
     Dates: start: 20090205
  7. VEPESIDE [Suspect]
     Active Substance: ETOPOSIDE
     Dosage: UNK
     Route: 042
     Dates: start: 20100301, end: 20100306
  8. ENDOXAN /00021101/ [Suspect]
     Active Substance: CYCLOPHOSPHAMIDE
     Dosage: UNK
     Route: 042
     Dates: start: 20090423
  9. THIOTEPA. [Suspect]
     Active Substance: THIOTEPA
     Indication: MEDULLOBLASTOMA
     Dosage: HIGH DOSE
     Route: 042
     Dates: start: 20120408, end: 20120415
  10. NATULAN [Concomitant]
     Active Substance: PROCARBAZINE HYDROCHLORIDE
     Indication: MEDULLOBLASTOMA
     Dosage: 6 COURSES
  11. BUSILVEX [Suspect]
     Active Substance: BUSULFAN
     Indication: MEDULLOBLASTOMA
     Dosage: HIGH DOSE
     Route: 042
     Dates: start: 20120408, end: 20120415
  12. VEPESIDE [Suspect]
     Active Substance: ETOPOSIDE
     Dosage: 120 MG, UNK
     Route: 042
     Dates: start: 20090205
  13. ENDOXAN /00021101/ [Suspect]
     Active Substance: CYCLOPHOSPHAMIDE
     Dosage: UNK
     Route: 042
     Dates: start: 20090205
  14. VINCRISTINE SULFATE. [Suspect]
     Active Substance: VINCRISTINE SULFATE
     Indication: MEDULLOBLASTOMA
     Dosage: UNK
     Route: 042
     Dates: start: 20090115
  15. VINCRISTINE SULFATE. [Suspect]
     Active Substance: VINCRISTINE SULFATE
     Dosage: UNK
     Route: 042
     Dates: start: 20090227
  16. VINCRISTINE SULFATE. [Suspect]
     Active Substance: VINCRISTINE SULFATE
     Dosage: 6 COURSES
     Route: 042
  17. CISPLATIN. [Suspect]
     Active Substance: CISPLATIN
     Dosage: UNK
     Route: 042
     Dates: start: 20090227
  18. ENDOXAN /00021101/ [Suspect]
     Active Substance: CYCLOPHOSPHAMIDE
     Dosage: 6 COURSES
     Route: 042
  19. CARBOPLATINE HOSPIRA [Suspect]
     Active Substance: CARBOPLATIN
     Indication: MEDULLOBLASTOMA
     Dosage: UNK
     Route: 042
     Dates: start: 20081024, end: 20081028
  20. VINCRISTINE SULFATE. [Suspect]
     Active Substance: VINCRISTINE SULFATE
     Dosage: UNK
     Route: 042
     Dates: start: 20090205
  21. VEPESIDE [Suspect]
     Active Substance: ETOPOSIDE
     Indication: MEDULLOBLASTOMA
     Dosage: 120 MG, UNK
     Route: 042
     Dates: start: 20081024, end: 20081028
  22. CARBOPLATINE HOSPIRA [Suspect]
     Active Substance: CARBOPLATIN
     Dosage: UNK
     Route: 042
     Dates: start: 20081114, end: 20081118
  23. BUSILVEX [Suspect]
     Active Substance: BUSULFAN
     Dosage: UNK
     Route: 042
     Dates: start: 201204
  24. CISPLATIN. [Suspect]
     Active Substance: CISPLATIN
     Indication: MEDULLOBLASTOMA
     Dosage: UNK
     Route: 042
     Dates: start: 20090115
  25. VEPESIDE [Suspect]
     Active Substance: ETOPOSIDE
     Dosage: 120 MG, UNK
     Route: 042
     Dates: start: 20090227
  26. ENDOXAN /00021101/ [Suspect]
     Active Substance: CYCLOPHOSPHAMIDE
     Indication: MEDULLOBLASTOMA
     Dosage: UNK
     Route: 042
     Dates: start: 20090115
  27. CISPLATIN. [Suspect]
     Active Substance: CISPLATIN
     Dosage: UNK
     Route: 042
     Dates: start: 20090423, end: 20090423
  28. VEPESIDE [Suspect]
     Active Substance: ETOPOSIDE
     Dosage: 120 MG, UNK
     Route: 042
     Dates: start: 20090115
  29. VEPESIDE [Suspect]
     Active Substance: ETOPOSIDE
     Dosage: 120 MG, UNK
     Route: 042
     Dates: start: 20090423

REACTIONS (2)
  - Second primary malignancy [Unknown]
  - Acute myeloid leukaemia [Unknown]

NARRATIVE: CASE EVENT DATE: 20151020
